FAERS Safety Report 21181325 (Version 2)
Quarter: 2022Q3

REPORT INFORMATION
  Report Type: Spontaneous
  Country: US (occurrence: US)
  Receive Date: 20220806
  Receipt Date: 20220911
  Transmission Date: 20221027
  Serious: No
  Sender: FDA-Public Use
  Company Number: US-SANOFI-01211692

PATIENT
  Age: 70 Year
  Sex: Male
  Weight: 103 kg

DRUGS (3)
  1. LANTUS [Suspect]
     Active Substance: INSULIN GLARGINE
     Indication: Type 1 diabetes mellitus
     Dosage: 30 IU, BID
  2. LANTUS [Suspect]
     Active Substance: INSULIN GLARGINE
     Dosage: 300 IU, BID
     Route: 058
  3. NOVOLOG [Concomitant]
     Active Substance: INSULIN ASPART
     Indication: Type 2 diabetes mellitus
     Dosage: 20 U TID
     Route: 065

REACTIONS (1)
  - Inappropriate schedule of product administration [Unknown]
